FAERS Safety Report 22342038 (Version 2)
Quarter: 2023Q2

REPORT INFORMATION
  Report Type: Spontaneous
  Country: BR (occurrence: BR)
  Receive Date: 20230518
  Receipt Date: 20230527
  Transmission Date: 20230722
  Serious: Yes (Other)
  Sender: FDA-Public Use
  Company Number: BR-BAXTER-2023BAX021301

PATIENT
  Sex: Female
  Weight: 60 kg

DRUGS (2)
  1. IRON [Suspect]
     Active Substance: IRON
     Indication: Blood iron decreased
     Dosage: 2 AMPOULES DILUTED IN 250 ML OF SALINE SOLUTION
     Route: 042
  2. SODIUM CHLORIDE [Suspect]
     Active Substance: SODIUM CHLORIDE
     Indication: Medication dilution
     Dosage: 250 ML OF SALINE SOLUTION
     Route: 042

REACTIONS (3)
  - Oedema [Recovered/Resolved]
  - Abdominal pain [Recovered/Resolved]
  - Urticaria [Recovered/Resolved]
